FAERS Safety Report 13843648 (Version 1)
Quarter: 2017Q3

REPORT INFORMATION
  Report Type: Spontaneous
  Country: US (occurrence: US)
  Receive Date: 20170808
  Receipt Date: 20170808
  Transmission Date: 20171127
  Serious: Yes (Hospitalization)
  Sender: FDA-Public Use
  Company Number: None

PATIENT
  Age: 57 Year
  Sex: Male

DRUGS (23)
  1. PREDNISONE. [Concomitant]
     Active Substance: PREDNISONE
  2. METOCLOPRAM [Concomitant]
     Active Substance: METOCLOPRAMIDE
  3. CALCIUM CARB [Concomitant]
  4. GLYBURIDE. [Concomitant]
     Active Substance: GLYBURIDE
  5. ASPIRIN. [Concomitant]
     Active Substance: ASPIRIN
  6. AMLODIPINE [Concomitant]
     Active Substance: AMLODIPINE BESYLATE
  7. SENSIPAR [Suspect]
     Active Substance: CINACALCET HYDROCHLORIDE
     Indication: RENAL TRANSPLANT
     Dosage: DOSE - 1 TAB (30MG)
     Route: 048
     Dates: start: 20120525
  8. GEMFIBROZIL. [Concomitant]
     Active Substance: GEMFIBROZIL
  9. PANTOPRAZOLE [Concomitant]
     Active Substance: PANTOPRAZOLE
  10. POT CHLORIDE [Concomitant]
     Active Substance: POTASSIUM CHLORIDE
  11. METFORMIN [Concomitant]
     Active Substance: METFORMIN HYDROCHLORIDE
  12. METOPROLOL. [Concomitant]
     Active Substance: METOPROLOL
  13. MYCOPHENOLATE [Concomitant]
     Active Substance: MYCOPHENOLIC ACID
  14. CLOPIDOGREL [Concomitant]
     Active Substance: CLOPIDOGREL BISULFATE
  15. ZETIA [Concomitant]
     Active Substance: EZETIMIBE
  16. CYCLOSPORINE. [Concomitant]
     Active Substance: CYCLOSPORINE
  17. WELCHOL [Concomitant]
     Active Substance: COLESEVELAM HYDROCHLORIDE
  18. TRAMADOL. [Concomitant]
     Active Substance: TRAMADOL
  19. LOSARTAN. [Concomitant]
     Active Substance: LOSARTAN
  20. ATENOLOL. [Concomitant]
     Active Substance: ATENOLOL
  21. ATORVASTATIN [Concomitant]
     Active Substance: ATORVASTATIN
  22. FUROSEMIDE. [Concomitant]
     Active Substance: FUROSEMIDE
  23. OMEPRAZOLE. [Concomitant]
     Active Substance: OMEPRAZOLE

REACTIONS (1)
  - Coronary artery bypass [None]

NARRATIVE: CASE EVENT DATE: 20170621
